FAERS Safety Report 14871432 (Version 2)
Quarter: 2018Q2

REPORT INFORMATION
  Report Type: Report from Study
  Country: None (occurrence: AT)
  Receive Date: 20180509
  Receipt Date: 20180524
  Transmission Date: 20180711
  Serious: Yes (Hospitalization)
  Sender: FDA-Public Use
  Company Number: AT-ABBVIE-18K-009-2348872-00

PATIENT
  Age: 75 Year
  Sex: Female

DRUGS (1)
  1. DUODOPA [Suspect]
     Active Substance: CARBIDOPA\LEVODOPA
     Indication: PARKINSON^S DISEASE
     Dosage: MD: 6.0?CR DAYTIME: 3.0?ED: 1.5
     Route: 050
     Dates: start: 20180412

REACTIONS (2)
  - Fall [Not Recovered/Not Resolved]
  - Femoral neck fracture [Not Recovered/Not Resolved]

NARRATIVE: CASE EVENT DATE: 20180507
